FAERS Safety Report 8080905-3 (Version None)
Quarter: 2012Q1

REPORT INFORMATION
  Report Type: 
  Country: None (occurrence: None)
  Receive Date: 20120130
  Receipt Date: 20120123
  Transmission Date: 20120608
  Serious: Yes (Hospitalization)
  Sender: FDA-Public Use
  Company Number: US-TEVA-318850USA

PATIENT
  Sex: Male

DRUGS (9)
  1. LEUCOVORIN CALCIUM [Suspect]
     Indication: OESOPHAGEAL CARCINOMA
     Dates: start: 20110831, end: 20111121
  2. INVESTIGATIONAL DRUG [Suspect]
     Indication: OESOPHAGEAL CARCINOMA
  3. BISELECT [Concomitant]
     Dates: start: 19920101
  4. AMLODIPINE [Concomitant]
     Dates: start: 20110921
  5. ONDANSETRON [Concomitant]
     Dates: start: 20100114
  6. MEGESTROL ACETATE [Concomitant]
     Dates: start: 20111005
  7. OXALIPLATIN [Suspect]
     Indication: OESOPHAGEAL CARCINOMA
     Dates: start: 20110831, end: 20111121
  8. LANSOPRAZOLE [Concomitant]
  9. FLUOROURACIL [Suspect]
     Indication: OESOPHAGEAL CARCINOMA
     Dates: start: 20110831, end: 20111121

REACTIONS (2)
  - DEHYDRATION [None]
  - THROMBOCYTOPENIA [None]
